FAERS Safety Report 23630337 (Version 1)
Quarter: 2024Q1

REPORT INFORMATION
  Report Type: Spontaneous
  Country: FR (occurrence: FR)
  Receive Date: 20240314
  Receipt Date: 20240314
  Transmission Date: 20240410
  Serious: Yes (Other)
  Sender: FDA-Public Use
  Company Number: None

PATIENT
  Age: 40 Year
  Weight: 90 kg

DRUGS (6)
  1. DOMPERIDONE [Suspect]
     Active Substance: DOMPERIDONE
     Indication: Medication error
     Dosage: 1 TAB
     Route: 048
     Dates: start: 20240114, end: 20240114
  2. PHENERGAN [Suspect]
     Active Substance: PROMETHAZINE HYDROCHLORIDE
     Indication: Medication error
     Dosage: 2 TAB
     Route: 048
     Dates: start: 20240114, end: 20240114
  3. CYAMEMAZINE [Suspect]
     Active Substance: CYAMEMAZINE
     Indication: Medication error
     Dosage: 1 TAB
     Route: 048
     Dates: start: 20240114, end: 20240114
  4. CLOZAPINE [Suspect]
     Active Substance: CLOZAPINE
     Indication: Medication error
     Dosage: 1 TAB
     Route: 048
     Dates: start: 20240114, end: 20240114
  5. MESTINON [Suspect]
     Active Substance: PYRIDOSTIGMINE BROMIDE
     Indication: Medication error
     Dosage: 1 TAB
     Route: 048
     Dates: start: 20240114, end: 20240114
  6. VALIUM [Suspect]
     Active Substance: DIAZEPAM
     Indication: Medication error
     Dosage: 1 TAB, SCORED TABLET , VALIUM ROCHE
     Route: 048
     Dates: start: 20240114, end: 20240114

REACTIONS (3)
  - Asthenia [Recovered/Resolved]
  - Medication error [Recovered/Resolved]
  - Cardiac disorder [Recovered/Resolved]

NARRATIVE: CASE EVENT DATE: 20240114
